FAERS Safety Report 11880028 (Version 2)
Quarter: 2016Q1

REPORT INFORMATION
  Report Type: Spontaneous
  Country: JP (occurrence: JP)
  Receive Date: 20151230
  Receipt Date: 20160111
  Transmission Date: 20160526
  Serious: Yes (Other)
  Sender: FDA-Public Use
  Company Number: JP-SA-2015SA220457

PATIENT
  Sex: Male

DRUGS (5)
  1. CYCLOPHOSPHAMIDE. [Suspect]
     Active Substance: CYCLOPHOSPHAMIDE
     Indication: BONE MARROW CONDITIONING REGIMEN
     Route: 048
  2. ANTI-THYMOCYTE GLOBULIN (RABBIT)/RABBIT ANTI-HUMAN THYMOCYTE IMMUNOGLOBULIN [Suspect]
     Active Substance: LAPINE T-LYMPHOCYTE IMMUNE GLOBULIN
     Indication: IMMUNOSUPPRESSANT DRUG THERAPY
     Route: 065
  3. FLUDARABINE PHOSPHATE. [Suspect]
     Active Substance: FLUDARABINE PHOSPHATE
     Indication: BONE MARROW CONDITIONING REGIMEN
     Route: 065
  4. CYCLOSPORIN A [Suspect]
     Active Substance: CYCLOSPORINE
     Indication: IMMUNOSUPPRESSANT DRUG THERAPY
     Route: 065
  5. PREDNISOLONE. [Concomitant]
     Active Substance: PREDNISOLONE
     Indication: PROPHYLAXIS

REACTIONS (15)
  - Gastrointestinal haemorrhage [Recovered/Resolved]
  - Cardiac failure [Recovering/Resolving]
  - Hepatic function abnormal [None]
  - Renal failure [None]
  - Lymphoproliferative disorder [Recovered/Resolved]
  - Off label use [Unknown]
  - Stem cell transplant [None]
  - Toxicity to various agents [None]
  - Nausea [Recovered/Resolved]
  - Pericardial effusion [Unknown]
  - Epigastric discomfort [Recovered/Resolved]
  - Gastric mucosal lesion [Recovered/Resolved]
  - Iron overload [None]
  - Haemodialysis [None]
  - Acute graft versus host disease [None]
